FAERS Safety Report 5467129-0 (Version None)
Quarter: 2007Q3

REPORT INFORMATION
  Report Type: 
  Country: None (occurrence: None)
  Receive Date: 20070921
  Receipt Date: 20070921
  Transmission Date: 20080115
  Serious: Yes (Hospitalization)
  Sender: FDA-Public Use
  Company Number: None

PATIENT
  Sex: Male

DRUGS (10)
  1. DULOXETINE 30 MG [Suspect]
     Indication: DEPRESSION
     Dosage: 30 MG DAILY PO
     Route: 048
     Dates: start: 20070906, end: 20070911
  2. FORTICAL [Concomitant]
  3. LOTENSIN [Concomitant]
  4. ASPIRIN [Concomitant]
  5. LUNESTA [Concomitant]
  6. HYTRIN [Concomitant]
  7. COUMADIN [Concomitant]
  8. ACULAR [Concomitant]
  9. MURO [Concomitant]
  10. MULTI-VITAMIN [Concomitant]

REACTIONS (4)
  - FALL [None]
  - INAPPROPRIATE ANTIDIURETIC HORMONE SECRETION [None]
  - MENTAL STATUS CHANGES [None]
  - WALKING AID USER [None]
